FAERS Safety Report 5220777-5 (Version None)
Quarter: 2007Q1

REPORT INFORMATION
  Report Type: 
  Country: None (occurrence: None)
  Receive Date: 20070126
  Receipt Date: 20070116
  Transmission Date: 20070707
  Serious: Yes (Other)
  Sender: FDA-Public Use
  Company Number: PHEH2006US14521

PATIENT
  Age: 66 Year
  Sex: Female
  Weight: 67.12 kg

DRUGS (6)
  1. FEMARA [Suspect]
     Indication: BREAST CANCER
     Dosage: 2.5 MG, QD
     Route: 048
     Dates: start: 20061012, end: 20061215
  2. FEMARA [Suspect]
     Dosage: 2.5 MG, QD
     Route: 048
     Dates: start: 20060901, end: 20060930
  3. FEMARA [Suspect]
     Dosage: 2.5 MG, QD
     Route: 048
     Dates: start: 20061007
  4. ENALAPRIL/HCT [Concomitant]
     Indication: HYPERTENSION
     Dosage: 10/25 QD
     Route: 048
     Dates: start: 20051202
  5. DIAMOX [Concomitant]
     Indication: VERTIGO
     Dosage: 2.5 MG, QD
     Route: 048
     Dates: start: 20060612
  6. METFORMIN HCL [Concomitant]
     Indication: DIABETES MELLITUS
     Dosage: 500 MG, QD
     Route: 048
     Dates: start: 20060612

REACTIONS (3)
  - BLOOD PRESSURE INCREASED [None]
  - CONDITION AGGRAVATED [None]
  - DIARRHOEA [None]
